FAERS Safety Report 6447281-0 (Version None)
Quarter: 2009Q4

REPORT INFORMATION
  Report Type: 
  Country: None (occurrence: None)
  Receive Date: 20091119
  Receipt Date: 20091105
  Transmission Date: 20100525
  Serious: Yes (Hospitalization)
  Sender: FDA-Public Use
  Company Number: PHHY2009DE33629

PATIENT
  Sex: Female
  Weight: 65 kg

DRUGS (4)
  1. PROVAS MAXX [Suspect]
     Indication: HYPERTENSION
     Dosage: 1 DF, QD
     Route: 048
     Dates: start: 20080501, end: 20090812
  2. BISOPROLOL [Suspect]
     Indication: HYPERTENSION
     Dosage: 1 DF, QD
     Route: 048
     Dates: start: 20020101, end: 20091007
  3. ATMADISC [Suspect]
     Indication: CHRONIC OBSTRUCTIVE PULMONARY DISEASE
     Dosage: 50 UG/UNKNOWN
     Dates: start: 20080424, end: 20080513
  4. ASPIRIN [Concomitant]
     Indication: CHOROIDAL INFARCTION
     Dosage: 100 MG PER DAY
     Route: 048
     Dates: start: 20020201

REACTIONS (29)
  - ABDOMINAL PAIN [None]
  - BACTERIAL INFECTION [None]
  - BLISTER [None]
  - BLOOD CHOLESTEROL INCREASED [None]
  - CANDIDIASIS [None]
  - CONJUNCTIVITIS [None]
  - DANDRUFF [None]
  - ECZEMA NUMMULAR [None]
  - EOSINOPHIL COUNT INCREASED [None]
  - ERYTHEMA [None]
  - EYE INFLAMMATION [None]
  - GINGIVITIS [None]
  - HYPERSENSITIVITY [None]
  - LACRIMATION INCREASED [None]
  - LEUKOCYTOSIS [None]
  - LIVER FUNCTION TEST ABNORMAL [None]
  - NASAL INFLAMMATION [None]
  - NEUTROPHIL COUNT INCREASED [None]
  - PEMPHIGOID [None]
  - PRURITUS [None]
  - PSORIASIS [None]
  - PYODERMA [None]
  - RED BLOOD CELL SEDIMENTATION RATE INCREASED [None]
  - SKIN HYPERPIGMENTATION [None]
  - SKIN LESION [None]
  - SKIN PLAQUE [None]
  - STOMATITIS [None]
  - TRANSAMINASES INCREASED [None]
  - WHITE BLOOD CELL COUNT INCREASED [None]
